FAERS Safety Report 16008062 (Version 2)
Quarter: 2019Q2

REPORT INFORMATION
  Report Type: Report from Study
  Country: CA (occurrence: CA)
  Receive Date: 20190226
  Receipt Date: 20190405
  Transmission Date: 20190711
  Serious: Yes (Hospitalization)
  Sender: FDA-Public Use
  Company Number: CA-HLSUS-2019-CA-000168

PATIENT
  Age: 58 Year
  Sex: Female
  Weight: 81.6 kg

DRUGS (6)
  1. CLOZARIL [Suspect]
     Active Substance: CLOZAPINE
     Indication: SCHIZOPHRENIA
     Dosage: 300MG BID
     Route: 048
     Dates: start: 20181228, end: 20190214
  2. LAMICTAL [Concomitant]
     Active Substance: LAMOTRIGINE
     Indication: AGGRESSION
     Dosage: 100MG BID
     Route: 048
     Dates: end: 20190105
  3. LOXAPINE. [Concomitant]
     Active Substance: LOXAPINE
     Indication: SCHIZOPHRENIA
     Dosage: 150MG DIE
     Route: 048
  4. OLANZAPINE. [Concomitant]
     Active Substance: OLANZAPINE
     Indication: SCHIZOPHRENIA
     Dosage: 30MG QHS
     Route: 048
  5. RIVOTRIL [Concomitant]
     Active Substance: CLONAZEPAM
     Indication: ANXIETY
     Dosage: 1.5MG DIE
     Route: 048
  6. LUVOX [Concomitant]
     Active Substance: FLUVOXAMINE MALEATE
     Dosage: 25MG DIE
     Route: 048
     Dates: start: 20190126, end: 20190203

REACTIONS (3)
  - Tardive dyskinesia [Recovered/Resolved with Sequelae]
  - Dysarthria [Recovered/Resolved]
  - Vertigo [Recovered/Resolved]

NARRATIVE: CASE EVENT DATE: 20190118
